FAERS Safety Report 9312198 (Version 1)
Quarter: 2013Q1

REPORT INFORMATION
  Report Type: Spontaneous
  Country: US (occurrence: None)
  Receive Date: 20130329
  Receipt Date: 20130329
  Transmission Date: 20140127
  Serious: Yes (Death, Life-Threatening, Hospitalization)
  Sender: FDA-Public Use
  Company Number: 137257-4

PATIENT
  Age: 54 Year
  Sex: Male
  Weight: 65 kg

DRUGS (1)
  1. ETOPOSIDE [Suspect]
     Indication: NON-SMALL CELL LUNG CANCER STAGE III
     Dosage: 50 MG/M2, IV
     Dates: start: 20120604, end: 20120608

REACTIONS (26)
  - Hypovolaemic shock [None]
  - Tracheal haemorrhage [None]
  - Sepsis [None]
  - Febrile neutropenia [None]
  - Hyponatraemia [None]
  - Renal failure acute [None]
  - General physical health deterioration [None]
  - Bronchopneumonia [None]
  - Procalcitonin increased [None]
  - Pseudomonas test positive [None]
  - Cholelithiasis [None]
  - Bladder disorder [None]
  - Haemodialysis [None]
  - Pleural effusion [None]
  - Infection [None]
  - Bronchial haemorrhage [None]
  - Acinetobacter test positive [None]
  - Fungal test positive [None]
  - Pericardial effusion [None]
  - Aspiration [None]
  - Catheter site swelling [None]
  - Blood sodium increased [None]
  - Blood chloride increased [None]
  - Candida test positive [None]
  - Bradycardia [None]
  - Electrolyte imbalance [None]
